FAERS Safety Report 6704198-1 (Version None)
Quarter: 2010Q2

REPORT INFORMATION
  Report Type: 
  Country: None (occurrence: None)
  Receive Date: 20100430
  Receipt Date: 20100421
  Transmission Date: 20101027
  Serious: Yes (Other)
  Sender: FDA-Public Use
  Company Number: US-JNJCH-2010010030

PATIENT
  Age: 62 Year
  Sex: Male

DRUGS (1)
  1. NEOSPORIN MAXIMUM STRENGTH OINTMENT [Suspect]
     Indication: ANIMAL SCRATCH
     Dosage: TEXT:SIZE OF A 1/2 DOLLAR 2-3 XS PER DAY
     Route: 061
     Dates: start: 20100411, end: 20100413

REACTIONS (6)
  - CELLULITIS [None]
  - DISCOMFORT [None]
  - HYPERSENSITIVITY [None]
  - OFF LABEL USE [None]
  - RASH [None]
  - URTICARIA [None]
